FAERS Safety Report 23637122 (Version 4)
Quarter: 2024Q2

REPORT INFORMATION
  Report Type: Spontaneous
  Country: GB (occurrence: GB)
  Receive Date: 20240315
  Receipt Date: 20240422
  Transmission Date: 20240716
  Serious: Yes (Hospitalization, Other)
  Sender: FDA-Public Use
  Company Number: GB-MYLANLABS-2024M1023130

PATIENT
  Age: 58 Year
  Sex: Male
  Weight: 94.6 kg

DRUGS (1)
  1. CLOZARIL [Suspect]
     Active Substance: CLOZAPINE
     Indication: Schizophrenia
     Dosage: UNK
     Route: 048
     Dates: start: 20090818

REACTIONS (6)
  - Osteomyelitis [Unknown]
  - Implant site infection [Unknown]
  - C-reactive protein increased [Unknown]
  - Tibia fracture [Unknown]
  - Anaemia [Unknown]
  - Therapy interrupted [Unknown]
